FAERS Safety Report 5789136-0 (Version None)
Quarter: 2008Q2

REPORT INFORMATION
  Report Type: 
  Country: None (occurrence: None)
  Receive Date: 20080626
  Receipt Date: 20071112
  Transmission Date: 20081010
  Serious: No
  Sender: FDA-Public Use
  Company Number: US-ASTRAZENECA-2007UW26216

PATIENT
  Age: 81 Year
  Sex: Female
  Weight: 88.5 kg

DRUGS (2)
  1. PULMICORT-100 [Suspect]
     Indication: CHRONIC OBSTRUCTIVE PULMONARY DISEASE
     Route: 055
     Dates: start: 20070301
  2. DUONEB [Concomitant]

REACTIONS (1)
  - WEIGHT INCREASED [None]
